FAERS Safety Report 6854942-8 (Version None)
Quarter: 2010Q3

REPORT INFORMATION
  Report Type: 
  Country: None (occurrence: None)
  Receive Date: 20100717
  Receipt Date: 20080227
  Transmission Date: 20110219
  Serious: No
  Sender: FDA-Public Use
  Company Number: US-PFIZER INC-2007108774

PATIENT
  Sex: Male
  Weight: 99.8 kg

DRUGS (5)
  1. CHANTIX [Suspect]
     Indication: SMOKING CESSATION THERAPY
     Dates: start: 20080101
  2. MAXZIDE [Suspect]
     Indication: HYPERTENSION
     Dates: start: 20071201, end: 20071201
  3. CARDURA [Concomitant]
     Indication: HYPERTENSION
  4. ZOCOR [Concomitant]
     Indication: BLOOD CHOLESTEROL INCREASED
  5. MULTI-VITAMINS [Concomitant]

REACTIONS (10)
  - ABDOMINAL DISTENSION [None]
  - ABDOMINAL PAIN UPPER [None]
  - ABNORMAL DREAMS [None]
  - DIARRHOEA [None]
  - EATING DISORDER [None]
  - FLATULENCE [None]
  - INSOMNIA [None]
  - NAUSEA [None]
  - STRESS [None]
  - WEIGHT INCREASED [None]
